FAERS Safety Report 4731270-8 (Version None)
Quarter: 2005Q3

REPORT INFORMATION
  Report Type: 
  Country: None (occurrence: None)
  Receive Date: 20050728
  Receipt Date: 20050728
  Transmission Date: 20060218
  Serious: Yes (Hospitalization)
  Sender: FDA-Public Use
  Company Number: None

PATIENT
  Sex: Male
  Weight: 73.2559 kg

DRUGS (3)
  1. GLIADEL [Suspect]
     Indication: GLIOBLASTOMA MULTIFORME
     Dosage: 7.7 MG PER WAFER - MAX OF 8
     Dates: start: 20050321
  2. O6-BENZYLGUANINE (06BG) [Suspect]
     Indication: GLIOBLASTOMA MULTIFORME
     Dosage: 30 MG/M2 INFUSION X 5 DAYS
     Dates: start: 20050321, end: 20050325
  3. DECADRON [Concomitant]

REACTIONS (7)
  - CHEST PAIN [None]
  - CONFUSIONAL STATE [None]
  - DIFFICULTY IN WALKING [None]
  - MENTAL STATUS CHANGES [None]
  - NUCLEAR MAGNETIC RESONANCE IMAGING ABNORMAL [None]
  - OEDEMA [None]
  - SPEECH DISORDER [None]
